FAERS Safety Report 26051791 (Version 2)
Quarter: 2025Q4

REPORT INFORMATION
  Report Type: Report from Study
  Country: CA (occurrence: CA)
  Receive Date: 20251117
  Receipt Date: 20251118
  Transmission Date: 20260117
  Serious: Yes (Other)
  Sender: ROCHE
  Company Number: CA-ROCHE-3083500

PATIENT
  Age: 38 Year
  Sex: Female
  Weight: 88.0 kg

DRUGS (7)
  1. OCREVUS [Suspect]
     Active Substance: OCRELIZUMAB
     Indication: Relapsing-remitting multiple sclerosis
     Dosage: 300 MG AT DAY 0 AND 14, THEN 600 MG EVERY 5 MONTH
     Route: 042
     Dates: start: 20220420
  2. OCREVUS [Suspect]
     Active Substance: OCRELIZUMAB
     Route: 042
  3. SYNTHROID [Concomitant]
     Active Substance: LEVOTHYROXINE SODIUM
  4. TYLENOL [Concomitant]
     Active Substance: ACETAMINOPHEN
  5. OZEMPIC [Concomitant]
     Active Substance: SEMAGLUTIDE
     Indication: Weight decreased
  6. MOXIFLOXACIN HYDROCHLORIDE [Concomitant]
     Active Substance: MOXIFLOXACIN HYDROCHLORIDE
  7. DOXYCYCLINE [Concomitant]
     Active Substance: DOXYCYCLINE

REACTIONS (9)
  - Infusion related reaction [Recovered/Resolved]
  - Limb discomfort [Not Recovered/Not Resolved]
  - Disturbance in attention [Not Recovered/Not Resolved]
  - Gastritis [Recovered/Resolved]
  - Multiple sclerosis [Not Recovered/Not Resolved]
  - Hypoaesthesia [Unknown]
  - Venous thrombosis [Unknown]
  - Sinusitis [Unknown]
  - Off label use [Unknown]

NARRATIVE: CASE EVENT DATE: 20220420
